FAERS Safety Report 10501595 (Version 1)
Quarter: 2014Q4

REPORT INFORMATION
  Report Type: Spontaneous
  Country: GB (occurrence: GB)
  Receive Date: 20141007
  Receipt Date: 20141007
  Transmission Date: 20150528
  Serious: Yes (Other)
  Sender: FDA-Public Use
  Company Number: GB-TEVA-512304ISR

PATIENT
  Age: 15 Year
  Sex: Female

DRUGS (3)
  1. RISPERIDONE. [Suspect]
     Active Substance: RISPERIDONE
     Indication: PSYCHOTIC DISORDER
     Dosage: 3 MILLIGRAM DAILY; 1MG IN THE MORNING AND 2MG AT NIGHT.
     Route: 048
     Dates: start: 20140801, end: 20140916
  2. DOXYCYCLINE. [Concomitant]
     Active Substance: DOXYCYCLINE
  3. QUETIAPINE [Suspect]
     Active Substance: QUETIAPINE
     Indication: PSYCHOTIC DISORDER
     Route: 048
     Dates: end: 20140915

REACTIONS (1)
  - Electrocardiogram abnormal [Not Recovered/Not Resolved]

NARRATIVE: CASE EVENT DATE: 20140801
